FAERS Safety Report 4929059-X (Version None)
Quarter: 2006Q1

REPORT INFORMATION
  Report Type: 
  Country: None (occurrence: None)
  Receive Date: 20060301
  Receipt Date: 20000316
  Transmission Date: 20060701
  Serious: Yes (Hospitalization, Disabling)
  Sender: FDA-Public Use
  Company Number: US-MERCK-00031670

PATIENT
  Age: 67 Year
  Sex: Female
  Weight: 89 kg

DRUGS (9)
  1. VIOXX [Suspect]
     Indication: ARTHRITIS
     Route: 048
     Dates: start: 19990707, end: 20000312
  2. VIOXX [Suspect]
     Route: 048
     Dates: start: 19990707, end: 20000312
  3. VIOXX [Suspect]
     Indication: PAIN
     Route: 048
     Dates: start: 19990707, end: 20000312
  4. VIOXX [Suspect]
     Route: 048
     Dates: start: 19990707, end: 20000312
  5. TENORMIN [Suspect]
     Route: 048
  6. ZESTORETIC [Suspect]
     Route: 048
     Dates: end: 20000301
  7. PREMPRO [Concomitant]
     Indication: HORMONE REPLACEMENT THERAPY
     Route: 065
     Dates: start: 19970101, end: 20050101
  8. TYLENOL (CAPLET) [Concomitant]
     Route: 065
     Dates: start: 19930101
  9. PREMARIN [Concomitant]
     Route: 065
     Dates: start: 19970101, end: 20050101

REACTIONS (40)
  - ADVERSE EVENT [None]
  - ANAEMIA [None]
  - ANAEMIA OF CHRONIC DISEASE [None]
  - AORTIC VALVE SCLEROSIS [None]
  - BLOOD CHOLESTEROL INCREASED [None]
  - BRADYCARDIA [None]
  - CARDIAC DISORDER [None]
  - CARDIAC FAILURE [None]
  - CARDIAC FAILURE CONGESTIVE [None]
  - CARDIOMEGALY [None]
  - DIARRHOEA [None]
  - DYSPNOEA [None]
  - DYSPNOEA EXERTIONAL [None]
  - DYSPNOEA PAROXYSMAL NOCTURNAL [None]
  - FATIGUE [None]
  - FLUID OVERLOAD [None]
  - FLUID RETENTION [None]
  - FOOT OPERATION [None]
  - GENERALISED OEDEMA [None]
  - GOUT [None]
  - HYPERTENSION [None]
  - HYPOXIA [None]
  - LUNG INFILTRATION [None]
  - MITRAL VALVE INCOMPETENCE [None]
  - MYOCARDIAL ISCHAEMIA [None]
  - ORTHOPNOEA [None]
  - PRURITUS [None]
  - PULMONARY FIBROSIS [None]
  - PULMONARY OEDEMA [None]
  - RED BLOOD CELL SEDIMENTATION RATE INCREASED [None]
  - RENAL CYST [None]
  - RENAL DISORDER [None]
  - RENAL FAILURE ACUTE [None]
  - RENAL FAILURE CHRONIC [None]
  - RENAL IMPAIRMENT [None]
  - RESPIRATORY DISORDER [None]
  - SKIN DISORDER [None]
  - THYROID DISORDER [None]
  - WEIGHT INCREASED [None]
  - WHEEZING [None]
